FAERS Safety Report 5401571-9 (Version None)
Quarter: 2007Q3

REPORT INFORMATION
  Report Type: 
  Country: None (occurrence: None)
  Receive Date: 20070731
  Receipt Date: 20070719
  Transmission Date: 20080115
  Serious: Yes (Other)
  Sender: FDA-Public Use
  Company Number: US-PFIZER INC-2007061296

PATIENT
  Sex: Male
  Weight: 81.8 kg

DRUGS (3)
  1. CHANTIX [Suspect]
     Indication: EX-SMOKER
  2. ZOCOR [Concomitant]
  3. VALSARTAN [Concomitant]

REACTIONS (2)
  - DIZZINESS [None]
  - IMPAIRED DRIVING ABILITY [None]
